FAERS Safety Report 19943317 (Version 1)
Quarter: 2021Q4

REPORT INFORMATION
  Report Type: Spontaneous
  Country: ES (occurrence: ES)
  Receive Date: 20211012
  Receipt Date: 20211012
  Transmission Date: 20220303
  Serious: Yes (Other)
  Sender: FDA-Public Use
  Company Number: ES-SA-SAC20211011000098

PATIENT
  Age: 74 Year
  Sex: Male

DRUGS (6)
  1. KEVZARA [Suspect]
     Active Substance: SARILUMAB
  2. METHOTREXATE [Suspect]
     Active Substance: METHOTREXATE
  3. TOCILIZUMAB [Concomitant]
     Active Substance: TOCILIZUMAB
     Indication: Rheumatoid arthritis
  4. OLUMIANT [Concomitant]
     Active Substance: BARICITINIB
  5. ADALIMUMAB [Concomitant]
     Active Substance: ADALIMUMAB
  6. FILGRASTIM [Concomitant]
     Active Substance: FILGRASTIM

REACTIONS (1)
  - Pancytopenia [Unknown]
